FAERS Safety Report 8841866 (Version 1)
Quarter: 2012Q4

REPORT INFORMATION
  Report Type: Spontaneous
  Country: US (occurrence: None)
  Receive Date: 20121015
  Receipt Date: 20121015
  Transmission Date: 20130627
  Serious: Yes (Other)
  Sender: FDA-Public Use
  Company Number: None

PATIENT
  Age: 60 Year
  Weight: 70.31 kg

DRUGS (2)
  1. PRILOSEC [Suspect]
     Indication: GASTRITIS
     Route: 048
     Dates: start: 20120813, end: 20120824
  2. PRILOSEC [Suspect]
     Indication: ULCER
     Route: 048
     Dates: start: 20120813, end: 20120824

REACTIONS (5)
  - Headache [None]
  - Fatigue [None]
  - Rash [None]
  - Pain in extremity [None]
  - Oedema peripheral [None]
